FAERS Safety Report 16206322 (Version 1)
Quarter: 2019Q2

REPORT INFORMATION
  Report Type: Report from Study
  Country: GB (occurrence: GB)
  Receive Date: 20190417
  Receipt Date: 20190417
  Transmission Date: 20190711
  Serious: Yes (Other)
  Sender: FDA-Public Use
  Company Number: GB-AMGEN-GBRSL2019056865

PATIENT
  Age: 83 Year
  Sex: Male

DRUGS (1)
  1. AMGEVITA [Suspect]
     Active Substance: ADALIMUMAB
     Indication: CROHN^S DISEASE
     Dosage: 40 MILLIGRAM, Q2WK
     Route: 065
     Dates: start: 2017

REACTIONS (3)
  - Mycobacterium tuberculosis complex test positive [Unknown]
  - Injection site haemorrhage [Unknown]
  - Bladder catheterisation [Unknown]
